FAERS Safety Report 6122792-6 (Version None)
Quarter: 2009Q1

REPORT INFORMATION
  Report Type: 
  Country: None (occurrence: None)
  Receive Date: 20090318
  Receipt Date: 20081002
  Transmission Date: 20090719
  Serious: No
  Sender: FDA-Public Use
  Company Number: US-AMGEN-KDL311131

PATIENT
  Sex: Male

DRUGS (8)
  1. NEULASTA [Suspect]
     Indication: CHEMOTHERAPY
     Dates: start: 20080925
  2. RITUXAN [Concomitant]
  3. ONCOVIN [Concomitant]
  4. DOXORUBICIN HCL [Concomitant]
  5. CYTOXAN [Concomitant]
  6. NEXIUM [Concomitant]
  7. VYTORIN [Concomitant]
  8. METFORMIN HCL [Concomitant]

REACTIONS (1)
  - DRUG INEFFECTIVE [None]
